FAERS Safety Report 15786156 (Version 1)
Quarter: 2019Q1

REPORT INFORMATION
  Report Type: Spontaneous
  Country: US (occurrence: US)
  Receive Date: 20190103
  Receipt Date: 20190103
  Transmission Date: 20190417
  Serious: No
  Sender: FDA-Public Use
  Company Number: US-009507513-1812USA011831

PATIENT
  Age: 30 Year
  Sex: Male

DRUGS (18)
  1. CHLORHEXIDINE ACETATE [Concomitant]
     Active Substance: CHLORHEXIDINE ACETATE
     Indication: OPHTHALMIC HERPES SIMPLEX
     Dosage: UNK, HOURLY
     Route: 061
  2. CHLORHEXIDINE ACETATE [Concomitant]
     Active Substance: CHLORHEXIDINE ACETATE
     Indication: ACANTHAMOEBA KERATITIS
  3. PROPAMIDINE ISETHIONATE [Concomitant]
     Active Substance: PROPAMIDINE ISETHIONATE
     Indication: OPHTHALMIC HERPES SIMPLEX
     Dosage: UNK, QH
  4. PROPAMIDINE ISETHIONATE [Concomitant]
     Active Substance: PROPAMIDINE ISETHIONATE
     Indication: ACANTHAMOEBA KERATITIS
  5. PREDNISONE. [Concomitant]
     Active Substance: PREDNISONE
     Indication: OPHTHALMIC HERPES SIMPLEX
     Dosage: 60 MILLIGRAM, DAILY
     Route: 048
  6. VORICONAZOLE. [Concomitant]
     Active Substance: VORICONAZOLE
     Indication: ACANTHAMOEBA KERATITIS
  7. MOXIFLOXACIN. [Concomitant]
     Active Substance: MOXIFLOXACIN
     Indication: ACANTHAMOEBA KERATITIS
  8. PENTAMIDINE ISETHIONATE. [Concomitant]
     Active Substance: PENTAMIDINE ISETHIONATE
     Indication: OPHTHALMIC HERPES SIMPLEX
     Dosage: 200 MILLIGRAM DAILY
     Route: 042
  9. PENTAMIDINE ISETHIONATE. [Concomitant]
     Active Substance: PENTAMIDINE ISETHIONATE
     Indication: ACANTHAMOEBA KERATITIS
  10. ACYCLOVIR. [Concomitant]
     Active Substance: ACYCLOVIR
     Indication: ACANTHAMOEBA KERATITIS
  11. VORICONAZOLE. [Concomitant]
     Active Substance: VORICONAZOLE
     Indication: ACANTHAMOEBA KERATITIS
  12. ACYCLOVIR. [Concomitant]
     Active Substance: ACYCLOVIR
     Indication: OPHTHALMIC HERPES SIMPLEX
     Route: 048
  13. VORICONAZOLE. [Concomitant]
     Active Substance: VORICONAZOLE
     Indication: OPHTHALMIC HERPES SIMPLEX
     Dosage: UNK, HOURLY
     Route: 061
  14. CANCIDAS [Suspect]
     Active Substance: CASPOFUNGIN ACETATE
     Indication: ACANTHAMOEBA KERATITIS
     Dosage: 50 MILLIGRAM, DAILY
     Route: 042
  15. CANCIDAS [Suspect]
     Active Substance: CASPOFUNGIN ACETATE
     Indication: OPHTHALMIC HERPES SIMPLEX
     Dosage: UNK
     Route: 042
  16. PREDNISONE. [Concomitant]
     Active Substance: PREDNISONE
     Indication: ACANTHAMOEBA KERATITIS
  17. VORICONAZOLE. [Concomitant]
     Active Substance: VORICONAZOLE
     Indication: OPHTHALMIC HERPES SIMPLEX
     Dosage: 200 MILLIGRAM, DAILY
     Route: 048
  18. MOXIFLOXACIN. [Concomitant]
     Active Substance: MOXIFLOXACIN
     Indication: OPHTHALMIC HERPES SIMPLEX
     Route: 061

REACTIONS (1)
  - Off label use [Unknown]
